FAERS Safety Report 9752059 (Version 1)
Quarter: 2013Q4

REPORT INFORMATION
  Report Type: Spontaneous
  Country: GB (occurrence: None)
  Receive Date: 20131211
  Receipt Date: 20131211
  Transmission Date: 20140711
  Serious: Yes (Other)
  Sender: FDA-Public Use
  Company Number: 2013-003867

PATIENT
  Age: 45 Year
  Sex: Female
  Weight: 104 kg

DRUGS (1)
  1. DORYX [Suspect]
     Route: 048
     Dates: start: 20131104

REACTIONS (8)
  - Anxiety [None]
  - Palpitations [None]
  - Visual impairment [None]
  - Tremor [None]
  - Dizziness [None]
  - Headache [None]
  - Neck pain [None]
  - Thinking abnormal [None]
